FAERS Safety Report 4488200-6 (Version None)
Quarter: 2004Q4

REPORT INFORMATION
  Report Type: 
  Country: None (occurrence: None)
  Receive Date: 20041026
  Receipt Date: 20041008
  Transmission Date: 20050328
  Serious: Yes (Other)
  Sender: FDA-Public Use
  Company Number: A03200403432

PATIENT

DRUGS (1)
  1. ALFUZOSIN [Suspect]
     Dosage: ORAL
     Route: 048

REACTIONS (1)
  - OROPHARYNGEAL SWELLING [None]
